FAERS Safety Report 25496981 (Version 1)
Quarter: 2025Q3

REPORT INFORMATION
  Report Type: Spontaneous
  Country: EU (occurrence: EU)
  Receive Date: 20250701
  Receipt Date: 20250701
  Transmission Date: 20251020
  Serious: Yes (Hospitalization, Other)
  Sender: CIPLA
  Company Number: EU-AEMPS-1697640

PATIENT

DRUGS (2)
  1. RIVAROXABAN [Suspect]
     Active Substance: RIVAROXABAN
     Indication: Atrial fibrillation
     Dosage: 20 MILLIGRAM, QD (FILM COATED TABLET), EVERY 24 HOURS
     Route: 048
     Dates: start: 20250205, end: 20250302
  2. ENOXAPARIN SODIUM [Concomitant]
     Active Substance: ENOXAPARIN SODIUM
     Indication: Atrial fibrillation
     Dosage: 80 MILLIGRAM, QD, (EVERY 24 HOURS) (8.000 UI (80 MG)/ 0.8 ML)
     Route: 058
     Dates: start: 20241224, end: 20250204

REACTIONS (3)
  - Anaemia [Recovering/Resolving]
  - Duodenal ulcer [Recovered/Resolved]
  - Gastrointestinal haemorrhage [Recovered/Resolved]

NARRATIVE: CASE EVENT DATE: 20250302
